FAERS Safety Report 9087477 (Version 1)
Quarter: 2013Q1

REPORT INFORMATION
  Report Type: Report from Study
  Country: US (occurrence: US)
  Receive Date: 20130130
  Receipt Date: 20130130
  Transmission Date: 20140127
  Serious: No
  Sender: FDA-Public Use
  Company Number: US-ABBOTT-12P-163-0954042-00

PATIENT
  Age: 63 Year
  Sex: Male

DRUGS (10)
  1. HUMIRA 40 MG/0.8 ML PEN [Suspect]
     Indication: CROHN^S DISEASE
     Dates: start: 2009
  2. LIALDA [Suspect]
     Indication: BLOOD CHOLESTEROL ABNORMAL
  3. LIPITOR [Suspect]
     Indication: BLOOD CHOLESTEROL ABNORMAL
  4. PLAVIX [Suspect]
     Indication: DIABETES MELLITUS
  5. METFORMIN [Suspect]
     Indication: DIABETES MELLITUS
  6. IMODIUM [Concomitant]
     Indication: PRODUCT USED FOR UNKNOWN INDICATION
     Dosage: DAILY
  7. ANTI GAS MEDICATION [Concomitant]
     Indication: COLITIS
     Dosage: DAILY
  8. ASPIRIN [Concomitant]
     Indication: PRODUCT USED FOR UNKNOWN INDICATION
  9. LANTUS [Concomitant]
     Indication: DIABETES MELLITUS
     Dosage: IN THE AM
     Route: 058
  10. HUMALOG [Concomitant]
     Indication: DIABETES MELLITUS
     Dosage: SLIDING SCALE THE REMAINDER OF  THE DAY

REACTIONS (3)
  - Weight decreased [Not Recovered/Not Resolved]
  - Gingival pain [Not Recovered/Not Resolved]
  - Mouth ulceration [Not Recovered/Not Resolved]
